FAERS Safety Report 24761044 (Version 1)
Quarter: 2024Q4

REPORT INFORMATION
  Report Type: Spontaneous
  Country: CH (occurrence: CH)
  Receive Date: 20241220
  Receipt Date: 20241220
  Transmission Date: 20250114
  Serious: Yes (Hospitalization, Other)
  Sender: MERCK
  Company Number: None

PATIENT
  Age: 77 Year
  Sex: Male
  Weight: 91 kg

DRUGS (3)
  1. KEYTRUDA [Suspect]
     Active Substance: PEMBROLIZUMAB
     Dosage: ADMINISTRATION: 06/09/2024; 23/09/2024; 01/10/2024 (3 DOSES TOTAL)
     Route: 040
     Dates: start: 20240906, end: 20241001
  2. PADCEV [Concomitant]
     Active Substance: ENFORTUMAB VEDOTIN\ENFORTUMAB VEDOTIN-EJFV
     Indication: Transitional cell carcinoma metastatic
     Dosage: ADMINISTRATION: 09/09/2024; 23/09/2024; 01/10/2024; 15/10/2024; 22/10/2024; 12/11/2024; 19/11/2024
     Route: 040
     Dates: start: 20240909
  3. ALLOPURINOL [Concomitant]
     Active Substance: ALLOPURINOL
     Dosage: LONG TERM TREATMENT
     Route: 048
     Dates: end: 20241125

REACTIONS (2)
  - Tubulointerstitial nephritis [Not Recovered/Not Resolved]
  - Acute kidney injury [Not Recovered/Not Resolved]

NARRATIVE: CASE EVENT DATE: 20241015
